FAERS Safety Report 17819360 (Version 1)
Quarter: 2020Q2

REPORT INFORMATION
  Report Type: Spontaneous
  Country: AU (occurrence: AU)
  Receive Date: 20200523
  Receipt Date: 20200523
  Transmission Date: 20200714
  Serious: Yes (Other)
  Sender: FDA-Public Use
  Company Number: NVSC2020AU140533

PATIENT
  Age: 14 Year
  Sex: Male

DRUGS (3)
  1. PAZOPANIB [Suspect]
     Active Substance: PAZOPANIB
     Indication: SARCOMA METASTATIC
     Dosage: UNK
     Route: 065
  2. DOXORUBICINE SANDOZ [Suspect]
     Active Substance: DOXORUBICIN
     Indication: PRODUCT USED FOR UNKNOWN INDICATION
     Route: 065
  3. IFOSFAMIDE. [Suspect]
     Active Substance: IFOSFAMIDE
     Indication: PRODUCT USED FOR UNKNOWN INDICATION
     Dosage: UNK
     Route: 065

REACTIONS (9)
  - Hypertension [Unknown]
  - Chronic kidney disease [Unknown]
  - Sarcoma metastatic [Unknown]
  - Granulocyte-colony stimulating factor level increased [Unknown]
  - Metastases to pelvis [Unknown]
  - Oesophagitis ulcerative [Unknown]
  - Pulmonary embolism [Unknown]
  - Vomiting [Unknown]
  - Malignant neoplasm progression [Unknown]
